FAERS Safety Report 17103926 (Version 1)
Quarter: 2019Q4

REPORT INFORMATION
  Report Type: Spontaneous
  Country: FR (occurrence: FR)
  Receive Date: 20191203
  Receipt Date: 20191203
  Transmission Date: 20200122
  Serious: Yes (Hospitalization)
  Sender: FDA-Public Use
  Company Number: FR-ROCHE-2481766

PATIENT
  Age: 20 Year
  Sex: Male

DRUGS (6)
  1. PREGABALINE [Suspect]
     Active Substance: PREGABALIN
     Indication: PRODUCT USED FOR UNKNOWN INDICATION
     Route: 048
  2. TRAMADOL HYDROCHLORIDE. [Suspect]
     Active Substance: TRAMADOL HYDROCHLORIDE
     Indication: PRODUCT USED FOR UNKNOWN INDICATION
     Route: 048
  3. CANNABIS [Concomitant]
     Active Substance: CANNABIS SATIVA SUBSP. INDICA TOP
  4. COCAINE [Concomitant]
     Active Substance: COCAINE
  5. CLONAZEPAM. [Suspect]
     Active Substance: CLONAZEPAM
     Indication: PRODUCT USED FOR UNKNOWN INDICATION
     Route: 048
  6. AMPHETAMINE [Concomitant]
     Active Substance: AMPHETAMINE

REACTIONS (6)
  - Intentional overdose [Unknown]
  - Coma [Recovered/Resolved]
  - Miosis [Recovered/Resolved]
  - Acidosis [Recovered/Resolved]
  - Pneumonia aspiration [Recovered/Resolved]
  - Bradypnoea [Recovered/Resolved]
